FAERS Safety Report 21386480 (Version 1)
Quarter: 2022Q3

REPORT INFORMATION
  Report Type: Spontaneous
  Country: US (occurrence: None)
  Receive Date: 20220926
  Receipt Date: 20220926
  Transmission Date: 20221026
  Serious: Yes (unspecified)
  Sender: FDA-Public Use
  Company Number: None

PATIENT
  Age: 19 Year
  Sex: Female
  Weight: 97.52 kg

DRUGS (1)
  1. BEBTELOVIMAB [Suspect]
     Active Substance: BEBTELOVIMAB
     Indication: COVID-19
     Dosage: OTHER FREQUENCY : UNKNOWN;?
     Route: 042
     Dates: start: 20220924, end: 20220924

REACTIONS (14)
  - Feeling abnormal [None]
  - Dyspnoea [None]
  - Dizziness [None]
  - Abdominal pain [None]
  - Nausea [None]
  - Erythema [None]
  - Hyperhidrosis [None]
  - Visual impairment [None]
  - Respiratory rate increased [None]
  - Heart rate increased [None]
  - Blood pressure increased [None]
  - Blood pressure decreased [None]
  - Infusion related reaction [None]
  - Cough [None]

NARRATIVE: CASE EVENT DATE: 20220924
